FAERS Safety Report 10060448 (Version 4)
Quarter: 2017Q3

REPORT INFORMATION
  Report Type: Spontaneous
  Country: JP (occurrence: JP)
  Receive Date: 20140404
  Receipt Date: 20170929
  Transmission Date: 20171127
  Serious: Yes (Death, Hospitalization, Other)
  Sender: FDA-Public Use
  Company Number: JP-PFIZER INC-2014094460

PATIENT
  Age: 65 Year
  Sex: Female

DRUGS (11)
  1. ALDACTONE A [Suspect]
     Active Substance: SPIRONOLACTONE
     Indication: ELECTROLYTE SUBSTITUTION THERAPY
  2. LASIX [Concomitant]
     Active Substance: FUROSEMIDE
     Indication: DIURETIC THERAPY
     Dosage: 10 MG, DAILY
     Dates: start: 20121229, end: 20121230
  3. MUCOSAL [Concomitant]
     Dosage: 45 MG, DAILY
     Dates: start: 20121231, end: 20130104
  4. ALDACTONE A [Suspect]
     Active Substance: SPIRONOLACTONE
     Indication: DIURETIC THERAPY
     Dosage: 25 MG, DAILY
     Route: 048
     Dates: start: 20121231, end: 20130103
  5. ZOSYN [Suspect]
     Active Substance: PIPERACILLIN SODIUM\TAZOBACTAM SODIUM
     Dosage: 4.5 G, 3X/DAY
     Route: 041
     Dates: start: 20130101, end: 20130104
  6. ONOACT [Concomitant]
     Active Substance: LANDIOLOL HYDROCHLORIDE
     Indication: ARRHYTHMIA
     Dosage: 100 MG, DAILY
     Dates: start: 20121228, end: 20130104
  7. NOVO HEPARIN [Concomitant]
     Active Substance: HEPARIN SODIUM
     Indication: ANTICOAGULANT THERAPY
     Dosage: 10000 IU, DAILY
     Dates: start: 20121227, end: 20130104
  8. BROTIZOLAM [Concomitant]
     Active Substance: BROTIZOLAM
     Indication: SEDATION
     Dosage: 0.25 MG, DAILY
     Dates: start: 20121230, end: 20130103
  9. HUMULIN R [Concomitant]
     Active Substance: INSULIN HUMAN
     Dosage: 100 IU, DAILY
     Dates: start: 20121229, end: 20130104
  10. INTRALIPOS [Concomitant]
     Active Substance: SOYBEAN OIL
     Dosage: 100 ML, DAILY
     Route: 041
     Dates: start: 20121231, end: 20130103
  11. GASTER [Concomitant]
     Active Substance: FAMOTIDINE
     Dosage: 20 MG, DAILY
     Route: 041
     Dates: start: 20121229, end: 20130104

REACTIONS (6)
  - Endocarditis [Fatal]
  - Cerebral haemorrhage [Fatal]
  - Sepsis [Fatal]
  - Cerebral infarction [Fatal]
  - Toxic epidermal necrolysis [Fatal]
  - Stevens-Johnson syndrome [Fatal]

NARRATIVE: CASE EVENT DATE: 201301
